FAERS Safety Report 10172398 (Version 2)
Quarter: 2014Q2

REPORT INFORMATION
  Report Type: Report from Study
  Country: RU (occurrence: RU)
  Receive Date: 20140515
  Receipt Date: 20140522
  Transmission Date: 20141212
  Serious: Yes (Hospitalization)
  Sender: FDA-Public Use
  Company Number: RU-ASTRAZENECA-2014SE32038

PATIENT
  Age: 22502 Day
  Sex: Male

DRUGS (7)
  1. AZD6140 [Suspect]
     Indication: CORONARY ARTERY DISEASE
     Route: 048
     Dates: start: 20120305, end: 20140409
  2. ACECARDOL [Suspect]
     Route: 048
  3. MERTENIL [Concomitant]
     Indication: DYSLIPIDAEMIA
     Route: 048
  4. CARDIKET [Concomitant]
     Indication: MYOCARDIAL ISCHAEMIA
     Route: 048
  5. EXFORGE [Concomitant]
     Indication: MYOCARDIAL ISCHAEMIA
     Route: 048
  6. EXFORGE [Concomitant]
     Indication: HYPERTENSION
     Route: 048
  7. BETALOK-ZOK [Concomitant]
     Indication: MYOCARDIAL ISCHAEMIA
     Route: 048

REACTIONS (4)
  - Gastric ulcer haemorrhage [Recovered/Resolved]
  - Dyspepsia [None]
  - Asthenia [None]
  - Dizziness [None]
